FAERS Safety Report 14639019 (Version 1)
Quarter: 2018Q1

REPORT INFORMATION
  Report Type: Report from Study
  Country: US (occurrence: US)
  Receive Date: 20180315
  Receipt Date: 20180315
  Transmission Date: 20180509
  Serious: Yes (Other)
  Sender: FDA-Public Use
  Company Number: US-AMGEN-USASL2018018087

PATIENT
  Age: 65 Year
  Sex: Female

DRUGS (1)
  1. REPATHA [Suspect]
     Active Substance: EVOLOCUMAB
     Indication: HYPERCHOLESTEROLAEMIA
     Dosage: 140 MG, Q2WK
     Route: 065
     Dates: start: 201710

REACTIONS (13)
  - Peripheral swelling [Unknown]
  - Swollen tongue [Unknown]
  - Eye pruritus [Unknown]
  - Eye swelling [Unknown]
  - Tryptase increased [Not Recovered/Not Resolved]
  - Urticaria [Unknown]
  - Swelling face [Unknown]
  - White blood cell disorder [Unknown]
  - Renal function test abnormal [Unknown]
  - Blood creatinine increased [Unknown]
  - Lip pruritus [Unknown]
  - Blood albumin increased [Unknown]
  - Lip swelling [Unknown]
